FAERS Safety Report 21846779 (Version 3)
Quarter: 2023Q1

REPORT INFORMATION
  Report Type: Spontaneous
  Country: US (occurrence: US)
  Receive Date: 20230111
  Receipt Date: 20230115
  Transmission Date: 20230418
  Serious: No
  Sender: FDA-Public Use
  Company Number: US-JNJFOC-20230111612

PATIENT
  Age: 8 Decade
  Sex: Female
  Weight: 56.750 kg

DRUGS (1)
  1. XARELTO [Suspect]
     Active Substance: RIVAROXABAN
     Indication: Cardiac ablation
     Route: 048
     Dates: start: 202109

REACTIONS (5)
  - Nasopharyngitis [Unknown]
  - Inappropriate schedule of product administration [Unknown]
  - Product packaging quantity issue [Unknown]
  - Product size issue [Unknown]
  - Off label use [Unknown]

NARRATIVE: CASE EVENT DATE: 20221225
